FAERS Safety Report 22932538 (Version 2)
Quarter: 2025Q2

REPORT INFORMATION
  Report Type: Spontaneous
  Country: US (occurrence: US)
  Receive Date: 20230912
  Receipt Date: 20250428
  Transmission Date: 20250716
  Serious: No
  Sender: JOHNSON AND JOHNSON
  Company Number: US-JNJFOC-20230917393

PATIENT
  Age: 70 Year
  Sex: Male
  Weight: 88 kg

DRUGS (1)
  1. RYBREVANT [Suspect]
     Active Substance: AMIVANTAMAB-VMJW
     Indication: Neoplasm malignant

REACTIONS (1)
  - Physical deconditioning [Unknown]
